FAERS Safety Report 6747662-1 (Version None)
Quarter: 2010Q2

REPORT INFORMATION
  Report Type: 
  Country: None (occurrence: None)
  Receive Date: 20100528
  Receipt Date: 20100517
  Transmission Date: 20101027
  Serious: No
  Sender: FDA-Public Use
  Company Number: NL-MEDIMMUNE-MEDI-0011165

PATIENT
  Sex: Male
  Weight: 10 kg

DRUGS (1)
  1. SYNAGIS [Suspect]
     Route: 030
     Dates: start: 20091030, end: 20100301

REACTIONS (2)
  - GENERAL PHYSICAL HEALTH DETERIORATION [None]
  - NASOPHARYNGITIS [None]
